FAERS Safety Report 7332572-1 (Version None)
Quarter: 2011Q1

REPORT INFORMATION
  Report Type: 
  Country: None (occurrence: None)
  Receive Date: 20110304
  Receipt Date: 20110221
  Transmission Date: 20110831
  Serious: Yes (Hospitalization)
  Sender: FDA-Public Use
  Company Number: PHHY2011US11185

PATIENT
  Sex: Male

DRUGS (1)
  1. EXJADE [Suspect]
     Dosage: 2500 MG, DAILY
     Route: 048

REACTIONS (3)
  - ULCER [None]
  - GASTROINTESTINAL DISORDER [None]
  - GASTROINTESTINAL EROSION [None]
